FAERS Safety Report 6185857-9 (Version None)
Quarter: 2009Q2

REPORT INFORMATION
  Report Type: 
  Country: None (occurrence: None)
  Receive Date: 20090511
  Receipt Date: 20090501
  Transmission Date: 20091009
  Serious: Yes (Hospitalization)
  Sender: FDA-Public Use
  Company Number: A0782962A

PATIENT
  Age: 55 Year
  Sex: Male
  Weight: 91.4 kg

DRUGS (5)
  1. AVANDIA [Suspect]
     Indication: DIABETES MELLITUS
     Dosage: 8MG PER DAY
     Route: 048
     Dates: start: 20051101, end: 20070701
  2. ACTOS [Concomitant]
  3. METFORMIN HCL [Concomitant]
  4. INSULIN [Concomitant]
  5. DIOVAN [Concomitant]

REACTIONS (2)
  - CARDIAC FAILURE CONGESTIVE [None]
  - MYOCARDIAL INFARCTION [None]
